FAERS Safety Report 12288449 (Version 2)
Quarter: 2016Q2

REPORT INFORMATION
  Report Type: Spontaneous
  Country: GB (occurrence: GB)
  Receive Date: 20160420
  Receipt Date: 20160511
  Transmission Date: 20160815
  Serious: Yes (Hospitalization)
  Sender: FDA-Public Use
  Company Number: GB-AMGEN-GBRSP2015119885

PATIENT
  Age: 64 Year
  Sex: Female

DRUGS (5)
  1. IRINOTECAN [Concomitant]
     Active Substance: IRINOTECAN
     Indication: COLON CANCER
     Dosage: UNK
  2. FLUOROURACIL. [Concomitant]
     Active Substance: FLUOROURACIL
     Indication: COLON CANCER
     Dosage: UNK
  3. NEULASTA [Suspect]
     Active Substance: PEGFILGRASTIM
     Indication: PRODUCT USED FOR UNKNOWN INDICATION
     Dosage: 6 MG, 24 HOURS POST CHEMO
     Route: 058
  4. APREPITANT. [Concomitant]
     Active Substance: APREPITANT
     Dosage: UNK
  5. AVASTIN [Suspect]
     Active Substance: BEVACIZUMAB
     Indication: COLON CANCER
     Dosage: UNK
     Route: 065

REACTIONS (15)
  - Neuropathy peripheral [Unknown]
  - Body temperature abnormal [Recovered/Resolved]
  - Diarrhoea [Unknown]
  - Confusional state [Unknown]
  - Oropharyngeal pain [Not Recovered/Not Resolved]
  - Disorientation [Unknown]
  - Nausea [Unknown]
  - Oral pain [Unknown]
  - Chest pain [Unknown]
  - Insomnia [Unknown]
  - Agitation [Unknown]
  - Asthenia [Unknown]
  - Psychomotor hyperactivity [Unknown]
  - Repetitive speech [Unknown]
  - Restlessness [Unknown]

NARRATIVE: CASE EVENT DATE: 2016
